FAERS Safety Report 7479682-6 (Version None)
Quarter: 2011Q2

REPORT INFORMATION
  Report Type: 
  Country: None (occurrence: None)
  Receive Date: 20110513
  Receipt Date: 20110110
  Transmission Date: 20111010
  Serious: Yes (Other)
  Sender: FDA-Public Use
  Company Number: US-BAYER-201022237NA

PATIENT
  Age: 26 Year
  Sex: Female
  Weight: 57 kg

DRUGS (7)
  1. TRAMADOL HYDROCHLORIDE [Concomitant]
  2. YASMIN [Suspect]
     Indication: PRODUCT USED FOR UNKNOWN INDICATION
     Route: 048
     Dates: start: 20071201, end: 20080901
  3. NSAID'S [Concomitant]
  4. ZOLOFT [Concomitant]
  5. KLONOPIN [Concomitant]
  6. YAZ [Suspect]
     Indication: PRODUCT USED FOR UNKNOWN INDICATION
     Dosage: UNK UNK, QD
     Route: 048
     Dates: start: 20071201, end: 20080917
  7. XANAX [Concomitant]

REACTIONS (2)
  - PULMONARY EMBOLISM [None]
  - MENORRHAGIA [None]
